FAERS Safety Report 14860130 (Version 1)
Quarter: 2018Q2

REPORT INFORMATION
  Report Type: Spontaneous
  Country: CN (occurrence: CN)
  Receive Date: 20180508
  Receipt Date: 20180508
  Transmission Date: 20180711
  Serious: Yes (Other)
  Sender: FDA-Public Use
  Company Number: CN-PFIZER INC-2018184487

PATIENT
  Age: 4 Year
  Sex: Male
  Weight: 19 kg

DRUGS (1)
  1. AZITHROMYCIN ANHYDROUS. [Suspect]
     Active Substance: AZITHROMYCIN ANHYDROUS
     Indication: PNEUMONIA
     Dosage: 0.19 G, 1X/DAY
     Route: 041
     Dates: start: 20180214, end: 20180214

REACTIONS (4)
  - Vomiting [Recovering/Resolving]
  - Hyperaemia [Recovering/Resolving]
  - Eyelid oedema [Recovering/Resolving]
  - Cough [Recovering/Resolving]

NARRATIVE: CASE EVENT DATE: 20180214
